FAERS Safety Report 6255985-8 (Version None)
Quarter: 2009Q2

REPORT INFORMATION
  Report Type: 
  Country: None (occurrence: None)
  Receive Date: 20090630
  Receipt Date: 20090630
  Transmission Date: 20091009
  Serious: No
  Sender: FDA-Public Use
  Company Number: None

PATIENT
  Age: 50 Year
  Sex: Male
  Weight: 34.0198 kg

DRUGS (1)
  1. DIVALPROEX 1500 MG [Suspect]
     Dosage: 1500 MG DAILY PO
     Route: 048

REACTIONS (1)
  - AMMONIA INCREASED [None]
